FAERS Safety Report 4395942-X (Version None)
Quarter: 2004Q3

REPORT INFORMATION
  Report Type: 
  Country: None (occurrence: None)
  Receive Date: 20040707
  Receipt Date: 20040622
  Transmission Date: 20050211
  Serious: Yes (Death, Hospitalization, Other)
  Sender: FDA-Public Use
  Company Number: 2004208123BE

PATIENT
  Age: 65 Year
  Sex: Male
  Weight: 85 kg

DRUGS (16)
  1. BEXTRA [Suspect]
     Indication: ARTHROPATHY
     Dosage: 20 MG, QD, ORAL
     Route: 048
     Dates: start: 20040115, end: 20040201
  2. AMLODIPINE BESYLATE [Concomitant]
  3. LANOXIN [Concomitant]
  4. DIMITONE [Concomitant]
  5. PLAVIX [Concomitant]
  6. STAURODORM (CARBROMAL, BENACTYZINE, METHAQUALONE HYDROCHLORIDE) [Concomitant]
  7. NOZINAN [Concomitant]
  8. XANAX [Concomitant]
  9. EFFEXOR [Concomitant]
  10. PAROXETINE HCL [Concomitant]
  11. TRAMADOL HCL [Concomitant]
  12. LYSANXIA (PRAZEPAM) [Concomitant]
  13. CELEBREX [Concomitant]
  14. ROFECOXIB [Concomitant]
  15. NOOTROPIL [Concomitant]
  16. ACETAMINOPHEN [Concomitant]

REACTIONS (21)
  - ADHESION [None]
  - BENIGN PROSTATIC HYPERPLASIA [None]
  - COLLAPSE OF LUNG [None]
  - CORONARY ARTERY ATHEROSCLEROSIS [None]
  - DYSPNOEA [None]
  - ERYTHROPHAGOCYTOSIS [None]
  - HEPATIC CIRRHOSIS [None]
  - HEPATIC STEATOSIS [None]
  - HEPATITIS [None]
  - MYOCARDIAL FIBROSIS [None]
  - PANCREATITIS CHRONIC [None]
  - PHARYNGOLARYNGEAL PAIN [None]
  - PORTAL HYPERTENSION [None]
  - PROSTATE CANCER [None]
  - SEPSIS [None]
  - SPLEEN CONGESTION [None]
  - STOMATITIS [None]
  - TACHYPNOEA [None]
  - TOXIC EPIDERMAL NECROLYSIS [None]
  - TOXIC SHOCK SYNDROME [None]
  - VENTRICULAR HYPERTROPHY [None]
